FAERS Safety Report 24770225 (Version 2)
Quarter: 2025Q1

REPORT INFORMATION
  Report Type: Report from Study
  Country: NL (occurrence: NL)
  Receive Date: 20241224
  Receipt Date: 20250107
  Transmission Date: 20250409
  Serious: Yes (Other)
  Sender: ALEXION PHARMACEUTICALS
  Company Number: NL-ALXN-202411GLO009818NL

PATIENT
  Age: 33 Year
  Weight: 110 kg

DRUGS (22)
  1. SOLIRIS [Suspect]
     Active Substance: ECULIZUMAB
     Indication: Paroxysmal nocturnal haemoglobinuria
  2. SOLIRIS [Suspect]
     Active Substance: ECULIZUMAB
     Route: 042
  3. SOLIRIS [Suspect]
     Active Substance: ECULIZUMAB
  4. SOLIRIS [Suspect]
     Active Substance: ECULIZUMAB
     Route: 042
  5. SOLIRIS [Suspect]
     Active Substance: ECULIZUMAB
  6. SOLIRIS [Suspect]
     Active Substance: ECULIZUMAB
     Route: 042
  7. SOLIRIS [Suspect]
     Active Substance: ECULIZUMAB
  8. SOLIRIS [Suspect]
     Active Substance: ECULIZUMAB
     Route: 042
  9. LEVOTHYROXINE [Concomitant]
     Active Substance: LEVOTHYROXINE
     Route: 048
  10. LEVOTHYROXINE [Concomitant]
     Active Substance: LEVOTHYROXINE
  11. VITAMINS [Concomitant]
     Active Substance: VITAMINS
     Route: 048
  12. VITAMINS [Concomitant]
     Active Substance: VITAMINS
  13. FOLIC ACID [Concomitant]
     Active Substance: FOLIC ACID
     Route: 048
  14. FOLIC ACID [Concomitant]
     Active Substance: FOLIC ACID
  15. AMOXICILLIN [Concomitant]
     Active Substance: AMOXICILLIN
     Route: 048
  16. AMOXICILLIN [Concomitant]
     Active Substance: AMOXICILLIN
  17. CLEMASTINE [Concomitant]
     Active Substance: CLEMASTINE
     Route: 042
  18. CLEMASTINE [Concomitant]
     Active Substance: CLEMASTINE
  19. DALTEPARIN [Concomitant]
     Active Substance: DALTEPARIN
     Route: 058
  20. DALTEPARIN [Concomitant]
     Active Substance: DALTEPARIN
  21. NADROPARIN [Concomitant]
     Active Substance: NADROPARIN
     Route: 058
  22. NADROPARIN [Concomitant]
     Active Substance: NADROPARIN

REACTIONS (2)
  - Postpartum haemorrhage [Recovered/Resolved]
  - Exposure during pregnancy [Recovered/Resolved]
